FAERS Safety Report 7041459-3 (Version None)
Quarter: 2010Q4

REPORT INFORMATION
  Report Type: 
  Country: None (occurrence: None)
  Receive Date: 20101008
  Receipt Date: 20100922
  Transmission Date: 20110411
  Serious: Yes (Hospitalization)
  Sender: FDA-Public Use
  Company Number: BVT-000692

PATIENT
  Sex: Female
  Weight: 27.4 kg

DRUGS (7)
  1. KINERET [Suspect]
     Indication: JUVENILE ARTHRITIS
     Dosage: (50 MG SUBCUTANEOUS), (50 MG SUBCUTANEOUS)
     Route: 058
     Dates: start: 20041101, end: 20100314
  2. KINERET [Suspect]
     Indication: JUVENILE ARTHRITIS
     Dosage: (50 MG SUBCUTANEOUS), (50 MG SUBCUTANEOUS)
     Route: 058
     Dates: start: 20100510, end: 20100607
  3. TUMS [Concomitant]
  4. SOLUPRED [Concomitant]
  5. EYE DROPS [Concomitant]
  6. LANSOYL [Concomitant]
  7. FRAGMIN [Concomitant]

REACTIONS (5)
  - CHOLESTASIS [None]
  - CONSTIPATION [None]
  - CYTOLYTIC HEPATITIS [None]
  - DECUBITUS ULCER [None]
  - HISTIOCYTOSIS HAEMATOPHAGIC [None]
